FAERS Safety Report 8815752 (Version 2)
Quarter: 2012Q4

REPORT INFORMATION
  Report Type: 
  Country: IE (occurrence: IE)
  Receive Date: 20120928
  Receipt Date: 20121011
  Transmission Date: 20130627
  Serious: Yes (Disabling, Other)
  Sender: FDA-Public Use
  Company Number: IE-ROCHE-1137027

PATIENT
  Age: 75 Year
  Sex: Male
  Weight: 90 kg

DRUGS (15)
  1. LUCENTIS [Suspect]
     Indication: AGE-RELATED MACULAR DEGENERATION
     Route: 050
     Dates: start: 20111206
  2. LUCENTIS [Suspect]
     Route: 050
     Dates: start: 20120117
  3. LUCENTIS [Suspect]
     Route: 050
     Dates: start: 20120215
  4. LUCENTIS [Suspect]
     Route: 050
     Dates: start: 20120330
  5. LUCENTIS [Suspect]
     Route: 050
     Dates: start: 20120501
  6. LUCENTIS [Suspect]
     Route: 050
     Dates: start: 20120706
  7. LUCENTIS [Suspect]
     Route: 050
     Dates: start: 20120921
  8. AVASTIN [Suspect]
     Indication: PRODUCT USED FOR UNKNOWN INDICATION
     Route: 065
     Dates: start: 20110506
  9. AVASTIN [Suspect]
     Route: 065
     Dates: start: 20110617
  10. AVASTIN [Suspect]
     Route: 065
     Dates: start: 20110803
  11. AVASTIN [Suspect]
     Route: 065
     Dates: start: 20110923
  12. AVASTIN [Suspect]
     Route: 065
     Dates: start: 20111104
  13. AVASTIN [Suspect]
     Route: 065
     Dates: start: 20111206
  14. TEGRETOL [Concomitant]
  15. EPANUTIN [Concomitant]

REACTIONS (1)
  - Macular scar [Unknown]
